FAERS Safety Report 7930024-9 (Version None)
Quarter: 2011Q4

REPORT INFORMATION
  Report Type: 
  Country: None (occurrence: None)
  Receive Date: 20111118
  Receipt Date: 20111118
  Transmission Date: 20120403
  Serious: Yes (Other)
  Sender: FDA-Public Use
  Company Number: None

PATIENT
  Age: 50 Year
  Sex: Female
  Weight: 54.8 kg

DRUGS (4)
  1. PEG-INTRON [Suspect]
     Indication: HEPATITIS C
     Dosage: 80MCG ONCE A WEEK SUBQ
     Route: 058
     Dates: start: 20110924
  2. INOLVEK [Concomitant]
  3. EPOGEN [Concomitant]
  4. RIBASPHERE [Suspect]
     Dosage: 400MG, 200MG TWICE DAILY ORAL
     Route: 048
     Dates: start: 20110924

REACTIONS (5)
  - HAEMORRHOIDS [None]
  - PROCTALGIA [None]
  - GASTROINTESTINAL DISORDER [None]
  - ANORECTAL DISCOMFORT [None]
  - RASH [None]
